FAERS Safety Report 9016410 (Version 4)
Quarter: 2013Q2

REPORT INFORMATION
  Report Type: Spontaneous
  Country: US (occurrence: US)
  Receive Date: 20130116
  Receipt Date: 20130529
  Transmission Date: 20140414
  Serious: Yes (Other)
  Sender: FDA-Public Use
  Company Number: US-GLAXOSMITHKLINE-A0980996A

PATIENT
  Age: 55 Year
  Sex: Female

DRUGS (2)
  1. FLOLAN [Suspect]
     Indication: PULMONARY ARTERIAL HYPERTENSION
     Dosage: 45.6NGKM CONTINUOUS
     Route: 065
     Dates: start: 20110930
  2. TRACLEER [Suspect]
     Indication: PRODUCT USED FOR UNKNOWN INDICATION
     Dosage: 125MG TWICE PER DAY

REACTIONS (14)
  - Loss of consciousness [Unknown]
  - Dysarthria [Unknown]
  - Hot flush [Unknown]
  - Pain in extremity [Unknown]
  - Syncope [Unknown]
  - Hypoaesthesia oral [Unknown]
  - Hyperhidrosis [Unknown]
  - Urinary incontinence [Unknown]
  - Diarrhoea [Unknown]
  - Dyspnoea [Unknown]
  - Nausea [Unknown]
  - Decreased appetite [Unknown]
  - Weight decreased [Unknown]
  - Abdominal pain upper [Unknown]
